FAERS Safety Report 4308850-7 (Version None)
Quarter: 2004Q1

REPORT INFORMATION
  Report Type: 
  Country: None (occurrence: None)
  Receive Date: 20040227
  Receipt Date: 20040212
  Transmission Date: 20041129
  Serious: Yes (Death, Hospitalization, Disabling, Other)
  Sender: FDA-Public Use
  Company Number: DSA_23762_2003

PATIENT
  Age: 22 Year
  Sex: Female
  Weight: 53 kg

DRUGS (8)
  1. LORAZEPAM [Suspect]
     Indication: ANXIETY
     Dosage: 2 MG TID PO
     Route: 048
     Dates: start: 19991231, end: 20000122
  2. LORAZEPAM [Suspect]
     Indication: DEPRESSION
     Dosage: 2 MG TID PO
     Route: 048
     Dates: start: 19991231, end: 20000122
  3. SANDOMIGRAN [Suspect]
     Indication: MIGRAINE
     Dosage: 0.5 MG QHS PO
     Route: 048
     Dates: end: 20000912
  4. PAROXETINE HCL [Concomitant]
  5. CLONAZEPAM [Concomitant]
  6. PROZAC [Concomitant]
  7. CLOPIXOL [Concomitant]
  8. VALPROIC ACID [Concomitant]

REACTIONS (25)
  - AGORAPHOBIA [None]
  - ALCOHOLISM [None]
  - ANOREXIA [None]
  - ANXIETY DISORDER [None]
  - ASTHENIA [None]
  - BLOOD PRESSURE INCREASED [None]
  - COMPLETED SUICIDE [None]
  - DEPRESSED MOOD [None]
  - DISORIENTATION [None]
  - DRUG WITHDRAWAL SYNDROME [None]
  - DYSPNOEA [None]
  - FEELING ABNORMAL [None]
  - HEADACHE [None]
  - HEART RATE INCREASED [None]
  - INTENTIONAL SELF-INJURY [None]
  - MOOD SWINGS [None]
  - NASAL CONGESTION [None]
  - PANIC ATTACK [None]
  - PERSONALITY DISORDER [None]
  - PHARYNGOLARYNGEAL PAIN [None]
  - PHOTOPHOBIA [None]
  - PYREXIA [None]
  - SUICIDE ATTEMPT [None]
  - TACHYPNOEA [None]
  - WEIGHT DECREASED [None]
